FAERS Safety Report 7269849-4 (Version None)
Quarter: 2011Q1

REPORT INFORMATION
  Report Type: 
  Country: None (occurrence: None)
  Receive Date: 20110125
  Receipt Date: 20110125
  Transmission Date: 20110831
  Serious: Yes (Hospitalization)
  Sender: FDA-Public Use
  Company Number: None

PATIENT
  Sex: Female
  Weight: 62.3 kg

DRUGS (5)
  1. CALCIUM CARBONATE [Suspect]
     Dosage: 600 MG
  2. VITAMIN D [Suspect]
     Dosage: 400 MG
  3. OXYCODONE HCL [Concomitant]
  4. ARIMIDEX [Concomitant]
  5. ZOMETA [Suspect]
     Dosage: 4 MG

REACTIONS (8)
  - VOMITING [None]
  - PULMONARY EMBOLISM [None]
  - NAUSEA [None]
  - PYREXIA [None]
  - JOINT CREPITATION [None]
  - PNEUMONIA [None]
  - HYPOPHOSPHATAEMIA [None]
  - METASTATIC PAIN [None]
